FAERS Safety Report 4704778-9 (Version None)
Quarter: 2005Q2

REPORT INFORMATION
  Report Type: 
  Country: None (occurrence: None)
  Receive Date: 20050630
  Receipt Date: 20050615
  Transmission Date: 20051028
  Serious: Yes (Death)
  Sender: FDA-Public Use
  Company Number: CERZ-10924

PATIENT
  Age: 4 Year
  Sex: Male

DRUGS (1)
  1. CEREZYME [Suspect]
     Indication: GAUCHER'S DISEASE
     Dosage: 1600 UNITS Q2WKS IV
     Route: 042

REACTIONS (6)
  - CARDIO-RESPIRATORY ARREST [None]
  - FATIGUE [None]
  - HYPERHIDROSIS [None]
  - MALAISE [None]
  - PYREXIA [None]
  - SUDDEN DEATH [None]
